FAERS Safety Report 20763525 (Version 2)
Quarter: 2022Q4

REPORT INFORMATION
  Report Type: Spontaneous
  Country: US (occurrence: US)
  Receive Date: 20220428
  Receipt Date: 20221104
  Transmission Date: 20230113
  Serious: No
  Sender: FDA-Public Use
  Company Number: US-TEVA-2022-US-2031291

PATIENT
  Sex: Female

DRUGS (7)
  1. PRAVASTATIN SODIUM [Suspect]
     Active Substance: PRAVASTATIN SODIUM
     Indication: Product used for unknown indication
     Route: 065
  2. ATORVASTATIN [Suspect]
     Active Substance: ATORVASTATIN
     Indication: Product used for unknown indication
     Route: 065
  3. LIPITOR [Suspect]
     Active Substance: ATORVASTATIN CALCIUM
     Indication: Product used for unknown indication
     Route: 065
  4. DETROL LA [Concomitant]
     Active Substance: TOLTERODINE TARTRATE
     Indication: Product used for unknown indication
  5. TOLTERODINE TARTRATE [Concomitant]
     Active Substance: TOLTERODINE TARTRATE
     Indication: Product used for unknown indication
  6. ZETIA [Concomitant]
     Active Substance: EZETIMIBE
     Indication: Blood cholesterol
  7. ACTONEL [Concomitant]
     Active Substance: RISEDRONATE SODIUM
     Indication: Product used for unknown indication

REACTIONS (7)
  - Arthralgia [Unknown]
  - Gait inability [Unknown]
  - Bone pain [Unknown]
  - Fatigue [Unknown]
  - Pain [Unknown]
  - Drug ineffective [Unknown]
  - Pain in extremity [Unknown]
